FAERS Safety Report 18194958 (Version 1)
Quarter: 2020Q3

REPORT INFORMATION
  Report Type: Spontaneous
  Country: US (occurrence: US)
  Receive Date: 20200825
  Receipt Date: 20200825
  Transmission Date: 20201103
  Serious: Yes (Other)
  Sender: FDA-Public Use
  Company Number: US-BRISTOL-MYERS SQUIBB COMPANY-BMS-2020-068416

PATIENT
  Age: 69 Year
  Sex: Male

DRUGS (3)
  1. IPILIMUMAB [Suspect]
     Active Substance: IPILIMUMAB
     Indication: HEPATIC CANCER METASTATIC
     Dosage: 3 MILLIGRAM/KILOGRAM (SECOND IMMUNONTHERAPY
     Route: 065
  2. PEMBROLIZUMAB. [Suspect]
     Active Substance: PEMBROLIZUMAB
     Indication: HEPATIC CANCER METASTATIC
     Dosage: 200 MILLIGRAM (FIRST IMMUNOTHERAPY)
     Route: 065
  3. NIVOLUMAB [Suspect]
     Active Substance: NIVOLUMAB
     Indication: HEPATIC CANCER METASTATIC
     Dosage: 1 MILLIGRAM/KILOGRAM (SECOND IMMUNONTHERAPY)
     Route: 065

REACTIONS (1)
  - Colitis [Unknown]
